FAERS Safety Report 5036084-X (Version None)
Quarter: 2006Q2

REPORT INFORMATION
  Report Type: 
  Country: None (occurrence: None)
  Receive Date: 20060627
  Receipt Date: 20060615
  Transmission Date: 20061013
  Serious: Yes (Hospitalization)
  Sender: FDA-Public Use
  Company Number: US-BOEHRINGER INGELHEIM PHARMACEUTICALS, INC.-2006-DE-03153GD

PATIENT
  Sex: Male

DRUGS (5)
  1. NEVIRAPINE [Suspect]
     Route: 015
  2. LAMIVUDINE [Suspect]
     Route: 015
  3. STAVUDINE [Suspect]
     Route: 015
  4. STEROIDS [Concomitant]
     Route: 015
  5. ANTIBIOTICS [Concomitant]
     Route: 015

REACTIONS (3)
  - CAESAREAN SECTION [None]
  - DRUG EXPOSURE DURING PREGNANCY [None]
  - PREMATURE BABY [None]
